FAERS Safety Report 8586504 (Version 8)
Quarter: 2015Q3

REPORT INFORMATION
  Report Type: Spontaneous
  Country: US (occurrence: US)
  Receive Date: 20120530
  Receipt Date: 20150817
  Transmission Date: 20151125
  Serious: Yes (Hospitalization, Other)
  Sender: FDA-Public Use
  Company Number: US-GLAXOSMITHKLINE-A0979214A

PATIENT
  Age: 77 Year
  Sex: Female

DRUGS (9)
  1. FLOLAN [Suspect]
     Active Substance: EPOPROSTENOL SODIUM
     Dosage: UNK
     Dates: start: 20070615
  2. FLOLAN [Suspect]
     Active Substance: EPOPROSTENOL SODIUM
     Dosage: 29.6 NG/KG/MIN, CO
     Route: 042
  3. FLOLAN [Suspect]
     Active Substance: EPOPROSTENOL SODIUM
     Dosage: UNK
     Dates: start: 20070615
  4. FLOLAN [Suspect]
     Active Substance: EPOPROSTENOL SODIUM
     Dosage: 36 NG/KG/MIN,CO
     Route: 042
  5. DIGOXIN. [Concomitant]
     Active Substance: DIGOXIN
  6. SPIRONOLACTONE. [Concomitant]
     Active Substance: SPIRONOLACTONE
  7. WARFARIN [Suspect]
     Active Substance: WARFARIN
     Indication: PRODUCT USED FOR UNKNOWN INDICATION
     Dosage: UNK, U
     Route: 065
  8. FLOLAN [Suspect]
     Active Substance: EPOPROSTENOL SODIUM
     Indication: PULMONARY ARTERIAL HYPERTENSION
     Dosage: 29.6 NG/KG/MIN
     Route: 042
     Dates: start: 20070615
  9. REVATIO [Concomitant]
     Active Substance: SILDENAFIL CITRATE

REACTIONS (8)
  - Cataract operation [Unknown]
  - Melanocytic naevus [Not Recovered/Not Resolved]
  - Feeling abnormal [Unknown]
  - Fluid retention [Unknown]
  - Hernia [Unknown]
  - Hospitalisation [Recovered/Resolved]
  - Thrombosis [Unknown]
  - Eye infection [Unknown]

NARRATIVE: CASE EVENT DATE: 2012
